FAERS Safety Report 4683966-4 (Version None)
Quarter: 2005Q2

REPORT INFORMATION
  Report Type: 
  Country: None (occurrence: None)
  Receive Date: 20050607
  Receipt Date: 20050314
  Transmission Date: 20051028
  Serious: Yes (Hospitalization)
  Sender: FDA-Public Use
  Company Number: US-MERCK-0503USA02948

PATIENT
  Age: 32 Year
  Sex: Male
  Weight: 106 kg

DRUGS (11)
  1. VIOXX [Suspect]
     Indication: ARTHRITIS
     Route: 048
     Dates: start: 19991101, end: 20020530
  2. VIOXX [Suspect]
     Route: 048
     Dates: start: 19991101, end: 20020530
  3. VIOXX [Suspect]
     Indication: ARTHRALGIA
     Route: 048
     Dates: start: 19991101, end: 20020530
  4. VIOXX [Suspect]
     Route: 048
     Dates: start: 19991101, end: 20020530
  5. OXYCONTIN [Concomitant]
     Route: 065
     Dates: start: 20010207
  6. [THERAPY UNSPECIFIED] [Concomitant]
     Route: 065
     Dates: start: 20010207
  7. BEXTRA [Concomitant]
     Route: 065
  8. ELAVIL [Concomitant]
     Route: 065
     Dates: start: 20010101, end: 20010101
  9. MOBIC [Concomitant]
     Route: 065
     Dates: start: 20020101
  10. CELEBREX [Concomitant]
     Route: 065
     Dates: start: 20020101, end: 20020501
  11. PREDNISONE [Concomitant]
     Route: 065

REACTIONS (25)
  - ABDOMINAL PAIN UPPER [None]
  - BACK PAIN [None]
  - BALANCE DISORDER [None]
  - CHEST PAIN [None]
  - CHRONIC FATIGUE SYNDROME [None]
  - DIZZINESS [None]
  - DYSPNOEA [None]
  - FIBROMYALGIA [None]
  - GASTRIC DISORDER [None]
  - HAEMATOCHEZIA [None]
  - INSOMNIA [None]
  - MITRAL VALVE INCOMPETENCE [None]
  - MYOCARDIAL INFARCTION [None]
  - NAUSEA [None]
  - NERVOUS SYSTEM DISORDER [None]
  - NERVOUSNESS [None]
  - NOCTURIA [None]
  - OSTEOARTHRITIS [None]
  - PAIN [None]
  - PERICARDITIS [None]
  - RASH [None]
  - ROAD TRAFFIC ACCIDENT [None]
  - SLEEP APNOEA SYNDROME [None]
  - SWELLING [None]
  - WEIGHT INCREASED [None]
